FAERS Safety Report 11448354 (Version 1)
Quarter: 2015Q3

REPORT INFORMATION
  Report Type: Spontaneous
  Country: US (occurrence: US)
  Receive Date: 20150831
  Receipt Date: 20150831
  Transmission Date: 20151125
  Serious: No
  Sender: FDA-Public Use
  Company Number: US-ELI_LILLY_AND_COMPANY-US200907000876

PATIENT
  Sex: Female

DRUGS (9)
  1. TOPAMAX [Concomitant]
     Active Substance: TOPIRAMATE
  2. ASA [Concomitant]
     Active Substance: ASPIRIN
  3. LEVOTHYROXINE. [Concomitant]
     Active Substance: LEVOTHYROXINE
  4. CYMBALTA [Suspect]
     Active Substance: DULOXETINE HYDROCHLORIDE
     Indication: DIABETIC NEUROPATHY
     Dosage: 60 MG, DAILY (1/D)
     Dates: start: 2007
  5. LEXAPRO [Concomitant]
     Active Substance: ESCITALOPRAM OXALATE
  6. LIPITOR [Concomitant]
     Active Substance: ATORVASTATIN CALCIUM
  7. MULTIVITAMIN [Concomitant]
     Active Substance: VITAMINS
  8. NOVOLOG [Concomitant]
     Active Substance: INSULIN ASPART
  9. ESTROGENS [Concomitant]
     Active Substance: ESTROGENS

REACTIONS (1)
  - Blood alcohol increased [Unknown]

NARRATIVE: CASE EVENT DATE: 2009
